FAERS Safety Report 6082654-X (Version None)
Quarter: 2009Q1

REPORT INFORMATION
  Report Type: 
  Country: None (occurrence: None)
  Receive Date: 20090218
  Receipt Date: 20090209
  Transmission Date: 20090719
  Serious: Yes (Other)
  Sender: FDA-Public Use
  Company Number: PHEH2009US01559

PATIENT
  Sex: Female

DRUGS (1)
  1. DIOVAN [Suspect]

REACTIONS (5)
  - DISCOMFORT [None]
  - EATING DISORDER [None]
  - NECROSIS [None]
  - PAIN [None]
  - SWOLLEN TONGUE [None]
